FAERS Safety Report 12849584 (Version 3)
Quarter: 2017Q4

REPORT INFORMATION
  Report Type: Spontaneous
  Country: US (occurrence: US)
  Receive Date: 20161014
  Receipt Date: 20171027
  Transmission Date: 20180320
  Serious: No
  Sender: FDA-Public Use
  Company Number: US-ROCHE-1763606

PATIENT
  Age: 76 Year
  Sex: Female

DRUGS (7)
  1. ASA [Concomitant]
     Active Substance: ASPIRIN
  2. LOSARTAN/HCTZ [Concomitant]
     Active Substance: HYDROCHLOROTHIAZIDE\LOSARTAN
  3. FISH OIL [Concomitant]
     Active Substance: FISH OIL
  4. SIMVASTATIN. [Concomitant]
     Active Substance: SIMVASTATIN
  5. ASPIRIN. [Concomitant]
     Active Substance: ASPIRIN
  6. ESBRIET [Suspect]
     Active Substance: PIRFENIDONE
     Indication: IDIOPATHIC PULMONARY FIBROSIS
     Route: 048
     Dates: start: 20160526, end: 20161101
  7. LEVOTHYROXINE. [Concomitant]
     Active Substance: LEVOTHYROXINE

REACTIONS (9)
  - Pruritus [Unknown]
  - Fatigue [Unknown]
  - Stomatitis [Recovered/Resolved]
  - Nausea [Unknown]
  - Insomnia [Recovered/Resolved]
  - Headache [Unknown]
  - Drug dose omission [Unknown]
  - Dry skin [Unknown]
  - Chapped lips [Recovered/Resolved]

NARRATIVE: CASE EVENT DATE: 20161024
